FAERS Safety Report 10343284 (Version 2)
Quarter: 2014Q3

REPORT INFORMATION
  Report Type: Spontaneous
  Country: CA (occurrence: CA)
  Receive Date: 20140725
  Receipt Date: 20140808
  Transmission Date: 20150326
  Serious: Yes (Other)
  Sender: FDA-Public Use
  Company Number: CA-WATSON-2014-16010

PATIENT
  Sex: Female
  Weight: 69 kg

DRUGS (4)
  1. FIBRISTAL (UNKNOWN) [Suspect]
     Active Substance: ULIPRISTAL
     Indication: UTERINE LEIOMYOMA
     Dosage: UNK MG, UNK
     Route: 048
     Dates: start: 20140520
  2. FERAMAX [Concomitant]
     Active Substance: IRON\POLYSACCHARIDES
     Indication: ANAEMIA
     Dosage: UNK MG, UNK
     Route: 048
     Dates: start: 201401
  3. SYNTHROID [Concomitant]
     Active Substance: LEVOTHYROXINE SODIUM
     Indication: HYPOTHYROIDISM
     Dosage: UNK ?G, UNK
     Route: 048
  4. FIBRISTAL (UNKNOWN) [Suspect]
     Active Substance: ULIPRISTAL
     Dosage: UNK

REACTIONS (3)
  - Uterine leiomyoma [Recovered/Resolved]
  - Off label use [Unknown]
  - Haemorrhage [Recovered/Resolved]
